FAERS Safety Report 25395225 (Version 1)
Quarter: 2025Q2

REPORT INFORMATION
  Report Type: Spontaneous
  Country: DE (occurrence: DE)
  Receive Date: 20250604
  Receipt Date: 20250604
  Transmission Date: 20250716
  Serious: Yes (Life-Threatening, Hospitalization, Other)
  Sender: BRACCO
  Company Number: DE-BRACCO-2025DE03380

PATIENT
  Age: 71 Year
  Sex: Male

DRUGS (1)
  1. IOMEPROL [Suspect]
     Active Substance: IOMEPROL
     Indication: Computerised tomogram
     Route: 042
     Dates: start: 20250521, end: 20250521

REACTIONS (6)
  - Dyspnoea [Unknown]
  - Discomfort [Unknown]
  - Blood pressure decreased [Unknown]
  - Syncope [Unknown]
  - Urinary incontinence [Unknown]
  - Circulatory collapse [Unknown]

NARRATIVE: CASE EVENT DATE: 20250521
